FAERS Safety Report 9915496 (Version 2)
Quarter: 2015Q2

REPORT INFORMATION
  Report Type: Report from Study
  Country: BR (occurrence: BR)
  Receive Date: 20140221
  Receipt Date: 20150410
  Transmission Date: 20150821
  Serious: Yes (Hospitalization)
  Sender: FDA-Public Use
  Company Number: BR-ROCHE-1351340

PATIENT
  Sex: Female
  Weight: 50 kg

DRUGS (8)
  1. ATENOLOL. [Concomitant]
     Active Substance: ATENOLOL
  2. MICARDIS [Concomitant]
     Active Substance: TELMISARTAN
  3. CALTRATE [Concomitant]
     Active Substance: CALCIUM CARBONATE
  4. ACTEMRA [Suspect]
     Active Substance: TOCILIZUMAB
     Indication: RHEUMATOID ARTHRITIS
     Route: 042
     Dates: start: 20120703, end: 20130516
  5. PRELONE [Concomitant]
     Active Substance: PREDNISOLONE
  6. PARATRAM [Concomitant]
  7. NIMESULIDE [Concomitant]
     Active Substance: NIMESULIDE
  8. METHOTREXATE [Concomitant]
     Active Substance: METHOTREXATE

REACTIONS (8)
  - Intervertebral disc protrusion [Not Recovered/Not Resolved]
  - Impaired healing [Recovered/Resolved]
  - Hypoaesthesia [Unknown]
  - Device related infection [Unknown]
  - Spinal disorder [Unknown]
  - Ear discomfort [Unknown]
  - Pain in extremity [Unknown]
  - Ear pain [Unknown]

NARRATIVE: CASE EVENT DATE: 2013
